FAERS Safety Report 22252911 (Version 1)
Quarter: 2023Q2

REPORT INFORMATION
  Report Type: Spontaneous
  Country: NL (occurrence: NL)
  Receive Date: 20230426
  Receipt Date: 20230426
  Transmission Date: 20230721
  Serious: Yes (Hospitalization)
  Sender: FDA-Public Use
  Company Number: None

PATIENT
  Sex: Female
  Weight: 76.1 kg

DRUGS (5)
  1. LISINOPRIL [Suspect]
     Active Substance: LISINOPRIL
     Indication: Hypertension
     Dosage: 30 MILLIGRAM DAILY; 1 DD 1 TABLET,   BRAND NAME NOT SPECIFIED
     Route: 065
     Dates: start: 20180524, end: 20230405
  2. VERAPAMIL [Suspect]
     Active Substance: VERAPAMIL HYDROCHLORIDE
     Indication: Atrial fibrillation
     Dosage: 240 MILLIGRAM DAILY; 3 DD 1 TABLET,  BRAND NAME NOT SPECIFIED
     Route: 065
     Dates: start: 20081117, end: 20230330
  3. DIGOXIN [Suspect]
     Active Substance: DIGOXIN
     Indication: Bradycardia
     Dosage: .63 MILLIGRAM DAILY; 1 DD 1 TABLET,  / BRAND NAME NOT SPECIFIED
     Dates: start: 20070404, end: 20230330
  4. DIGOXIN [Suspect]
     Active Substance: DIGOXIN
     Indication: Atrial fibrillation
  5. DIGOXIN [Suspect]
     Active Substance: DIGOXIN
     Indication: Atrioventricular block

REACTIONS (3)
  - Acute kidney injury [Recovered/Resolved]
  - Hyperkalaemia [Recovered/Resolved]
  - Bradycardia [Recovered/Resolved]
